FAERS Safety Report 13664004 (Version 3)
Quarter: 2017Q3

REPORT INFORMATION
  Report Type: Spontaneous
  Country: CN (occurrence: CN)
  Receive Date: 20170619
  Receipt Date: 20170803
  Transmission Date: 20171127
  Serious: Yes (Death)
  Sender: FDA-Public Use
  Company Number: CN-ROCHE-1952102

PATIENT
  Age: 66 Year
  Sex: Female

DRUGS (1)
  1. LUCENTIS [Suspect]
     Active Substance: RANIBIZUMAB
     Indication: DIABETIC RETINAL OEDEMA
     Dosage: 0.5 MG, (BOTH EYES)
     Route: 031
     Dates: start: 20170615

REACTIONS (9)
  - Death [Fatal]
  - Blood creatinine increased [Unknown]
  - Protein urine present [Unknown]
  - Vomiting [Unknown]
  - Blood pressure decreased [Unknown]
  - Chest discomfort [Unknown]
  - Haemoglobin decreased [Unknown]
  - Heart rate decreased [Unknown]
  - Dyspnoea [Unknown]

NARRATIVE: CASE EVENT DATE: 20170615
